FAERS Safety Report 6660719-9 (Version None)
Quarter: 2010Q1

REPORT INFORMATION
  Report Type: 
  Country: None (occurrence: None)
  Receive Date: 20100331
  Receipt Date: 20100330
  Transmission Date: 20100710
  Serious: Yes (Other)
  Sender: FDA-Public Use
  Company Number: DE-B.I. PHARMACEUTICALS,INC./RIDGEFIELD-2010-DE-01926DE

PATIENT
  Sex: Female
  Weight: 110 kg

DRUGS (2)
  1. MICARDIS [Suspect]
     Dosage: 40 ANZ
     Route: 048
  2. BISOLICH 10 MG [Suspect]
     Dosage: 6 ANZ
     Route: 048

REACTIONS (4)
  - DRUG ABUSE [None]
  - OVERDOSE [None]
  - SUICIDE ATTEMPT [None]
  - VISION BLURRED [None]
